FAERS Safety Report 7245536-3 (Version None)
Quarter: 2011Q1

REPORT INFORMATION
  Report Type: 
  Country: None (occurrence: None)
  Receive Date: 20110126
  Receipt Date: 20101215
  Transmission Date: 20110831
  Serious: Yes (Other)
  Sender: FDA-Public Use
  Company Number: US-BAXTER-2010BH000851

PATIENT
  Age: 57 Year
  Sex: Male
  Weight: 72 kg

DRUGS (20)
  1. REOPRO [Suspect]
     Indication: ANTICOAGULANT THERAPY
     Route: 042
     Dates: start: 20071203
  2. ANGIOMAX [Suspect]
     Indication: ANTICOAGULANT THERAPY
     Route: 042
     Dates: start: 20071203
  3. PERCOCET [Concomitant]
     Indication: PRODUCT USED FOR UNKNOWN INDICATION
     Route: 065
  4. DEXTROSE W/NITROGLYCERINE [Concomitant]
     Indication: VASOSPASM
     Route: 022
     Dates: start: 20071203
  5. LOPRESSOR [Concomitant]
     Indication: PRODUCT USED FOR UNKNOWN INDICATION
     Route: 065
  6. PROTONIX [Concomitant]
     Indication: PRODUCT USED FOR UNKNOWN INDICATION
     Route: 065
  7. PLAVIX [Concomitant]
     Indication: PRODUCT USED FOR UNKNOWN INDICATION
     Route: 065
  8. REGLAN [Concomitant]
     Indication: PRODUCT USED FOR UNKNOWN INDICATION
     Route: 065
     Dates: start: 20071203
  9. HEPARIN SODIUM INJECTION [Suspect]
     Indication: MYOCARDIAL INFARCTION
     Route: 042
     Dates: start: 20071203, end: 20071205
  10. ANGIOMAX [Suspect]
     Route: 042
     Dates: start: 20071203, end: 20071203
  11. TOPROL-XL [Concomitant]
     Indication: PRODUCT USED FOR UNKNOWN INDICATION
     Route: 065
  12. ZOCOR [Concomitant]
     Indication: PRODUCT USED FOR UNKNOWN INDICATION
     Route: 065
  13. REOPRO [Concomitant]
     Indication: PRODUCT USED FOR UNKNOWN INDICATION
     Route: 065
  14. PROPOFOL [Concomitant]
     Indication: PRODUCT USED FOR UNKNOWN INDICATION
     Route: 065
     Dates: start: 20071230
  15. REOPRO [Suspect]
     Route: 042
     Dates: start: 20071203, end: 20071204
  16. ASA [Concomitant]
     Indication: PRODUCT USED FOR UNKNOWN INDICATION
     Route: 065
  17. FENTANYL [Concomitant]
     Indication: PRODUCT USED FOR UNKNOWN INDICATION
     Route: 065
     Dates: start: 20071203
  18. LIDOCAINE HYDROCHLORIDE IN PLASTIC CONTAINER [Concomitant]
     Indication: PRODUCT USED FOR UNKNOWN INDICATION
     Route: 065
     Dates: start: 20071203
  19. EZETIMIBE [Concomitant]
     Indication: PRODUCT USED FOR UNKNOWN INDICATION
     Route: 065
  20. VERSED [Concomitant]
     Indication: PRODUCT USED FOR UNKNOWN INDICATION
     Route: 065
     Dates: start: 20071203

REACTIONS (5)
  - POST PROCEDURAL HAEMATOMA [None]
  - HEPARIN-INDUCED THROMBOCYTOPENIA [None]
  - HEADACHE [None]
  - HYPOTENSION [None]
  - HYPERSENSITIVITY [None]
